FAERS Safety Report 10260898 (Version 1)
Quarter: 2014Q2

REPORT INFORMATION
  Report Type: Report from Study
  Country: IL (occurrence: IL)
  Receive Date: 20140626
  Receipt Date: 20140626
  Transmission Date: 20141212
  Serious: Yes (Disabling)
  Sender: FDA-Public Use
  Company Number: PHHY2014IL078082

PATIENT
  Sex: Male

DRUGS (1)
  1. SANDOSTATIN LAR [Suspect]
     Indication: ACROMEGALY
     Dosage: 30 MG, Q4W
     Route: 030
     Dates: start: 20120402

REACTIONS (1)
  - Visual acuity reduced [Not Recovered/Not Resolved]
